FAERS Safety Report 10463267 (Version 1)
Quarter: 2014Q3

REPORT INFORMATION
  Report Type: Spontaneous
  Country: US (occurrence: US)
  Receive Date: 20140919
  Receipt Date: 20140919
  Transmission Date: 20150326
  Serious: No
  Sender: FDA-Public Use
  Company Number: US-BIOGENIDEC-2014BI093534

PATIENT
  Age: 42 Year
  Sex: Female

DRUGS (2)
  1. TECFIDERA [Suspect]
     Active Substance: DIMETHYL FUMARATE
     Indication: RELAPSING-REMITTING MULTIPLE SCLEROSIS
     Route: 048
     Dates: start: 20140718, end: 20140724
  2. TECFIDERA [Suspect]
     Active Substance: DIMETHYL FUMARATE
     Indication: RELAPSING-REMITTING MULTIPLE SCLEROSIS
     Route: 048
     Dates: start: 20140725

REACTIONS (12)
  - Nausea [Unknown]
  - Stress [Unknown]
  - Halo vision [Unknown]
  - Pain in extremity [Unknown]
  - Altered visual depth perception [Unknown]
  - Eye pain [Unknown]
  - Flushing [Unknown]
  - Visual impairment [Unknown]
  - Gait disturbance [Unknown]
  - Balance disorder [Unknown]
  - Arthralgia [Unknown]
  - Abdominal discomfort [Unknown]

NARRATIVE: CASE EVENT DATE: 201407
